FAERS Safety Report 6899611-3 (Version None)
Quarter: 2010Q3

REPORT INFORMATION
  Report Type: 
  Country: None (occurrence: None)
  Receive Date: 20100803
  Receipt Date: 20100721
  Transmission Date: 20110219
  Serious: Yes (Other)
  Sender: FDA-Public Use
  Company Number: PHHY2010JP43034

PATIENT
  Age: 64 Year
  Sex: Female

DRUGS (4)
  1. SIMULECT [Suspect]
     Indication: RENAL TRANSPLANT
  2. TACROLIMUS [Concomitant]
     Indication: RENAL TRANSPLANT
  3. MIZORIBINE [Concomitant]
     Indication: RENAL TRANSPLANT
  4. PREDNISOLONE [Concomitant]
     Indication: RENAL TRANSPLANT
     Dosage: 60 MG
     Route: 048

REACTIONS (12)
  - ANTI-ERYTHROCYTE ANTIBODY POSITIVE [None]
  - ANTI-PLATELET ANTIBODY NEGATIVE [None]
  - BLOOD BILIRUBIN INCREASED [None]
  - BLOOD IMMUNOGLOBULIN G INCREASED [None]
  - BLOOD LACTATE DEHYDROGENASE INCREASED [None]
  - COOMBS DIRECT TEST POSITIVE [None]
  - COOMBS INDIRECT TEST POSITIVE [None]
  - HAEMOGLOBIN DECREASED [None]
  - HAEMOLYTIC ANAEMIA [None]
  - HAPTOGLOBIN DECREASED [None]
  - IDIOPATHIC THROMBOCYTOPENIC PURPURA [None]
  - THROMBOCYTOPENIA [None]
